FAERS Safety Report 13795905 (Version 1)
Quarter: 2017Q3

REPORT INFORMATION
  Report Type: Spontaneous
  Country: US (occurrence: US)
  Receive Date: 20170726
  Receipt Date: 20170726
  Transmission Date: 20171127
  Serious: Yes (Other)
  Sender: FDA-Public Use
  Company Number: US-MALLINCKRODT-T201703042

PATIENT
  Sex: Male

DRUGS (1)
  1. H.P. ACTHAR [Suspect]
     Active Substance: CORTICOTROPIN
     Indication: SYSTEMIC LUPUS ERYTHEMATOSUS
     Dosage: 80 UNITS / ML, TWICE WEEKLY
     Route: 058
     Dates: start: 201602

REACTIONS (3)
  - Road traffic accident [Unknown]
  - Lower limb fracture [Unknown]
  - Back injury [Unknown]
